FAERS Safety Report 21555212 (Version 6)
Quarter: 2023Q2

REPORT INFORMATION
  Report Type: Spontaneous
  Country: US (occurrence: US)
  Receive Date: 20221104
  Receipt Date: 20230614
  Transmission Date: 20230721
  Serious: No
  Sender: FDA-Public Use
  Company Number: US-VERTEX PHARMACEUTICALS-2022-014841

PATIENT
  Sex: Female
  Weight: 9 kg

DRUGS (9)
  1. ORKAMBI [Suspect]
     Active Substance: IVACAFTOR\LUMACAFTOR
     Indication: Cystic fibrosis
     Dosage: 1 PACKET OF GRANULES (100 MG LUMACAFTOR/125 MG IVACAFTOR), BID
     Route: 048
     Dates: start: 20220921, end: 20221031
  2. ORKAMBI [Suspect]
     Active Substance: IVACAFTOR\LUMACAFTOR
     Dosage: 100 MG LUMACAFTOR/125 MG IVACAFTOR
     Route: 048
     Dates: start: 20221104
  3. MIRALAX [Concomitant]
     Active Substance: POLYETHYLENE GLYCOL 3350
     Dosage: 17 G/DOSE POWDER
  4. ALBUTEROL SULFATE [Concomitant]
     Active Substance: ALBUTEROL SULFATE
  5. SODIUM CHLORIDE [Concomitant]
     Active Substance: SODIUM CHLORIDE
     Dosage: 7 % VIAL-NEB
  6. OMEPRAZOLE [Concomitant]
     Active Substance: OMEPRAZOLE
     Dosage: 10 MG CAPSULE DR
  7. CREON [Concomitant]
     Active Substance: PANCRELIPASE AMYLASE\PANCRELIPASE LIPASE\PANCRELIPASE PROTEASE
     Dosage: 3-9.5-15K CAPSULE DR
  8. ERYTHROMYCIN [Concomitant]
     Active Substance: ERYTHROMYCIN
  9. RELIZORB [Concomitant]

REACTIONS (7)
  - Pain [Not Recovered/Not Resolved]
  - Gastrointestinal disorder [Recovering/Resolving]
  - Device dislocation [Unknown]
  - Vomiting [Recovered/Resolved]
  - Decreased appetite [Unknown]
  - Bacterial test positive [Unknown]
  - Selective eating disorder [Unknown]

NARRATIVE: CASE EVENT DATE: 20220101
